FAERS Safety Report 11125432 (Version 2)
Quarter: 2015Q2

REPORT INFORMATION
  Report Type: Spontaneous
  Country: BR (occurrence: BR)
  Receive Date: 20150520
  Receipt Date: 20150615
  Transmission Date: 20150821
  Serious: Yes (Hospitalization, Other)
  Sender: FDA-Public Use
  Company Number: BR-ASTRAZENECA-2015SE44919

PATIENT
  Age: 381 Month
  Sex: Male
  Weight: 107 kg

DRUGS (1)
  1. CRESTOR [Suspect]
     Active Substance: ROSUVASTATIN CALCIUM
     Indication: BLOOD CHOLESTEROL INCREASED
     Route: 048
     Dates: start: 201412

REACTIONS (1)
  - Vascular graft occlusion [Recovered/Resolved]

NARRATIVE: CASE EVENT DATE: 201504
